FAERS Safety Report 7308748-6 (Version None)
Quarter: 2011Q1

REPORT INFORMATION
  Report Type: 
  Country: None (occurrence: None)
  Receive Date: 20110223
  Receipt Date: 20110211
  Transmission Date: 20110831
  Serious: Yes (Other)
  Sender: FDA-Public Use
  Company Number: PHHY2010DE65059

PATIENT
  Sex: Female
  Weight: 57 kg

DRUGS (2)
  1. ALENDRONIC ACID [Concomitant]
     Indication: OSTEOPOROSIS
     Dosage: 70 MG, ONCE WEEKLY
     Route: 048
     Dates: start: 20060801, end: 20060801
  2. ACLASTA [Suspect]
     Indication: OSTEOPOROSIS
     Dosage: 5 MG, ONCE YEARLY
     Route: 042
     Dates: start: 20090901, end: 20100901

REACTIONS (3)
  - NEOPLASM MALIGNANT [None]
  - PAIN [None]
  - OSTEONECROSIS OF JAW [None]
